FAERS Safety Report 24692178 (Version 2)
Quarter: 2025Q3

REPORT INFORMATION
  Report Type: Report from Study
  Country: EU (occurrence: EU)
  Receive Date: 20241203
  Receipt Date: 20250803
  Transmission Date: 20251020
  Serious: Yes (Hospitalization, Other)
  Sender: ALEXION PHARMACEUTICALS
  Company Number: EU-ASTRAZENECA-202410EEA009012IE

PATIENT
  Sex: Female

DRUGS (16)
  1. FASENRA [Suspect]
     Active Substance: BENRALIZUMAB
     Indication: Asthma
     Dosage: 30 MILLIGRAM, QMONTH
     Dates: start: 20240423
  2. FASENRA [Suspect]
     Active Substance: BENRALIZUMAB
     Dosage: 30 MILLIGRAM, QMONTH
     Dates: start: 20240521
  3. FASENRA [Suspect]
     Active Substance: BENRALIZUMAB
     Dosage: 30 MILLIGRAM, QMONTH
     Dates: start: 20240618
  4. FASENRA [Suspect]
     Active Substance: BENRALIZUMAB
     Dosage: 30 MILLIGRAM, QMONTH
     Dates: start: 20240808
  5. ALVESCO [Concomitant]
     Active Substance: CICLESONIDE
     Route: 050
  6. SERETIDE [Concomitant]
     Active Substance: FLUTICASONE PROPIONATE\SALMETEROL XINAFOATE
     Route: 050
  7. SPIRIVA [Concomitant]
     Active Substance: TIOTROPIUM BROMIDE MONOHYDRATE
     Route: 050
  8. MONTELUKAST [Concomitant]
     Active Substance: MONTELUKAST
     Route: 050
  9. ATORVASTATIN [Concomitant]
     Active Substance: ATORVASTATIN
     Route: 050
  10. MIRTAZAPINE [Concomitant]
     Active Substance: MIRTAZAPINE
     Route: 050
  11. DAPAGLIFLOZIN [Concomitant]
     Active Substance: DAPAGLIFLOZIN
     Route: 050
  12. LOSEC [Concomitant]
     Active Substance: OMEPRAZOLE
     Route: 050
  13. ASPIRIN [Concomitant]
     Active Substance: ASPIRIN
     Route: 050
  14. FEXOFENADINE [Concomitant]
     Active Substance: FEXOFENADINE HYDROCHLORIDE
     Route: 050
  15. Cozatan [Concomitant]
     Route: 050
  16. BISOPROLOL [Concomitant]
     Active Substance: BISOPROLOL
     Route: 050

REACTIONS (4)
  - Asthma [Unknown]
  - Pulmonary embolism [Unknown]
  - Rash [Unknown]
  - Blister [Unknown]
